FAERS Safety Report 8273512-0 (Version None)
Quarter: 2012Q2

REPORT INFORMATION
  Report Type: 
  Country: None (occurrence: None)
  Receive Date: 20120411
  Receipt Date: 20120404
  Transmission Date: 20120825
  Serious: Yes (Hospitalization)
  Sender: FDA-Public Use
  Company Number: US-VERTEX PHARMACEUTICALS INC.-AE-2012-004578

PATIENT
  Sex: Female
  Weight: 70.37 kg

DRUGS (5)
  1. PEGASYS [Concomitant]
     Indication: HEPATITIS C
     Route: 058
     Dates: start: 20120217
  2. INCIVEK [Suspect]
     Indication: HEPATITIS C
     Route: 048
     Dates: start: 20120217
  3. RIBAVIRIN [Concomitant]
     Indication: HEPATITIS C
     Dates: start: 20120217, end: 20120322
  4. RIBAVIRIN [Concomitant]
     Dates: start: 20120322
  5. METFORMIN HCL [Concomitant]

REACTIONS (8)
  - FATIGUE [None]
  - URINARY TRACT INFECTION [None]
  - DEHYDRATION [None]
  - STOMATITIS [None]
  - JAW DISORDER [None]
  - NAUSEA [None]
  - ANAEMIA [None]
  - ORAL CANDIDIASIS [None]
